FAERS Safety Report 5865356-1 (Version None)
Quarter: 2008Q3

REPORT INFORMATION
  Report Type: 
  Country: None (occurrence: None)
  Receive Date: 20080829
  Receipt Date: 20080821
  Transmission Date: 20090109
  Serious: Yes (Other)
  Sender: FDA-Public Use
  Company Number: AT-ABBOTT-08P-008-0472031-00

PATIENT
  Age: 58 Year
  Sex: Female
  Weight: 90 kg

DRUGS (1)
  1. KLACID UNO [Suspect]
     Indication: TRACHEITIS
     Route: 048
     Dates: start: 20080710, end: 20080715

REACTIONS (1)
  - DELUSION [None]
